FAERS Safety Report 9565798 (Version 1)
Quarter: 2013Q3

REPORT INFORMATION
  Report Type: Spontaneous
  Country: SE (occurrence: SE)
  Receive Date: 20130930
  Receipt Date: 20130930
  Transmission Date: 20140515
  Serious: Yes (Other)
  Sender: FDA-Public Use
  Company Number: SE-GLAXOSMITHKLINE-B0925851A

PATIENT
  Sex: Female

DRUGS (2)
  1. LAMICTAL [Suspect]
     Indication: IDIOPATHIC GENERALISED EPILEPSY
     Dosage: 400MG PER DAY
     Route: 048
     Dates: start: 20130204
  2. FENANTOIN [Suspect]
     Indication: IDIOPATHIC GENERALISED EPILEPSY
     Dosage: 600MG PER DAY
     Route: 048
     Dates: start: 20130201

REACTIONS (3)
  - Hirsutism [Not Recovered/Not Resolved]
  - Virilism [Not Recovered/Not Resolved]
  - Gingival hyperplasia [Not Recovered/Not Resolved]
